FAERS Safety Report 18479999 (Version 1)
Quarter: 2020Q4

REPORT INFORMATION
  Report Type: Spontaneous
  Country: US (occurrence: US)
  Receive Date: 20201109
  Receipt Date: 20201109
  Transmission Date: 20210114
  Serious: Yes (Other)
  Sender: FDA-Public Use
  Company Number: US-FRESENIUS KABI-FK202011733

PATIENT
  Age: 54 Year
  Sex: Male

DRUGS (12)
  1. INSULIN [Suspect]
     Active Substance: INSULIN NOS
     Indication: EVIDENCE BASED TREATMENT
     Route: 042
  2. ACETYLSALICYLIC ACID [Concomitant]
     Active Substance: ASPIRIN
  3. ROCURONIUM BROMIDE. [Concomitant]
     Active Substance: ROCURONIUM BROMIDE
  4. GLUCOSE (MANUFACTURER UNKNOWN) [Suspect]
     Active Substance: DEXTROSE
     Indication: EVIDENCE BASED TREATMENT
     Dosage: UNK
     Route: 042
  5. CALCIUM CHLORIDE. [Suspect]
     Active Substance: CALCIUM CHLORIDE
     Indication: EVIDENCE BASED TREATMENT
     Route: 042
  6. SODIUM BICARBONATE. [Concomitant]
     Active Substance: SODIUM BICARBONATE
  7. CLEVIDIPINE [Concomitant]
     Active Substance: CLEVIDIPINE
  8. KETAMINE [Concomitant]
     Active Substance: KETAMINE
  9. POTASSIUM CHLORIDE. [Concomitant]
     Active Substance: POTASSIUM CHLORIDE
  10. AMIODARONE [Concomitant]
     Active Substance: AMIODARONE
  11. NOREPINEPHRINE. [Concomitant]
     Active Substance: NOREPINEPHRINE
  12. VASOPRESSIN. [Concomitant]
     Active Substance: VASOPRESSIN

REACTIONS (3)
  - Hypokalaemia [Unknown]
  - Hypercalcaemia [Unknown]
  - Rhabdomyolysis [Unknown]
